FAERS Safety Report 4320164-8 (Version None)
Quarter: 2004Q1

REPORT INFORMATION
  Report Type: 
  Country: None (occurrence: None)
  Receive Date: 20040317
  Receipt Date: 20040302
  Transmission Date: 20041129
  Serious: Yes (Hospitalization, Disabling)
  Sender: FDA-Public Use
  Company Number: FR-SHR-03-000602

PATIENT
  Age: 39 Year
  Sex: Female

DRUGS (4)
  1. MIRENA [Suspect]
     Indication: CONTRACEPTION
     Dosage: 20 UG, CONT, INTRA-UTERINE
     Route: 015
     Dates: start: 19991014
  2. SIBELIUM (FLUNARIZINE DIHYDROCHLORIDE) [Concomitant]
  3. SERC [Concomitant]
  4. PROPOFAN (CHLORPHENAMINE MALEATE, DEXTROPROPOXYPHENE, CARBASALATE CALC [Concomitant]

REACTIONS (2)
  - CEREBROVASCULAR ACCIDENT [None]
  - HEMIPARESIS [None]
